FAERS Safety Report 21671676 (Version 1)
Quarter: 2022Q4

REPORT INFORMATION
  Report Type: Report from Study
  Country: ES (occurrence: ES)
  Receive Date: 20221202
  Receipt Date: 20221202
  Transmission Date: 20230112
  Serious: Yes (Hospitalization)
  Sender: FDA-Public Use
  Company Number: ES-EMA-DD-20221116-6644853-141513

PATIENT
  Age: 60 Year
  Sex: Female
  Weight: 89 kg

DRUGS (8)
  1. METHOTREXATE SODIUM [Suspect]
     Active Substance: METHOTREXATE SODIUM
     Indication: Product used for unknown indication
     Dosage: 20 MG, WEEKLY, DURATION : 819 DAYS
     Route: 065
     Dates: start: 20200519, end: 20220815
  2. HYRIMOZ [Suspect]
     Active Substance: ADALIMUMAB-ADAZ
     Indication: Rheumatoid arthritis
     Dosage: 40 MG, EVERY 2 WEEKS, FREQUENCY TIME : 1 CYCLICAL, THERAPY END DATE : NASK
     Route: 065
     Dates: start: 2020
  3. TRAMADOL [Concomitant]
     Active Substance: TRAMADOL
     Indication: Product used for unknown indication
     Dosage: 100 MG, 3X/DAY, UNIT DOSE : 300 MG, FREQUENCY TIME : 1 DAYS
     Route: 065
  4. OLMESARTAN [Concomitant]
     Active Substance: OLMESARTAN
     Indication: Product used for unknown indication
     Dosage: 20 MILLIGRAM DAILY;
     Route: 065
  5. TRAZODONE [Concomitant]
     Active Substance: TRAZODONE HYDROCHLORIDE
     Indication: Product used for unknown indication
     Dosage: 100 MILLIGRAM DAILY;
     Route: 065
  6. FOLIC ACID [Concomitant]
     Active Substance: FOLIC ACID
     Indication: Product used for unknown indication
     Dosage: 10 MILLIGRAM DAILY;
     Route: 065
  7. METFORMIN [Concomitant]
     Active Substance: METFORMIN HYDROCHLORIDE
     Indication: Product used for unknown indication
     Dosage: 1700 MILLIGRAM DAILY; 850 MG, 2X/DAY, , FREQUENCY TIME : 1 DAYS
     Route: 065
  8. METAMIZOLE [Concomitant]
     Active Substance: METAMIZOLE
     Indication: Product used for unknown indication
     Dosage: 1725 MILLIGRAM DAILY; 575 MG, 3X/DAY, UNIT DOSE : 1725 MG, FREQUENCY TIME : 1 DAYS
     Route: 065

REACTIONS (1)
  - Pneumonia legionella [Not Recovered/Not Resolved]

NARRATIVE: CASE EVENT DATE: 20220815
